FAERS Safety Report 6043032-2 (Version None)
Quarter: 2009Q1

REPORT INFORMATION
  Report Type: 
  Country: None (occurrence: None)
  Receive Date: 20090119
  Receipt Date: 20090106
  Transmission Date: 20090719
  Serious: Yes (Hospitalization)
  Sender: FDA-Public Use
  Company Number: US-ELI_LILLY_AND_COMPANY-US200901000578

PATIENT
  Sex: Female

DRUGS (16)
  1. FORTEO [Suspect]
  2. NEXIUM [Concomitant]
     Dosage: 40 MG, DAILY (1/D)
  3. LASIX [Concomitant]
     Dosage: 40 MG, DAILY (1/D)
  4. INDERAL [Concomitant]
     Dosage: 20 MG, UNK
  5. FENTANYL [Concomitant]
     Dosage: UNK, 3/D
  6. ASPIRIN [Concomitant]
     Dosage: 81 MG, DAILY (1/D)
  7. PLAVIX [Concomitant]
     Dosage: 75 MG, DAILY (1/D)
  8. AMIODARONE HCL [Concomitant]
     Dosage: 100 MG, UNK
  9. CALCIUM CARBONATE [Concomitant]
     Dosage: 500 MG, 2/D
  10. SPIRIVA [Concomitant]
     Dosage: 18 UG, DAILY (1/D)
  11. FERROUS SULFATE TAB [Concomitant]
  12. LOPRESSOR [Concomitant]
     Dosage: 25 MG, 2/D
  13. PROCARDIA [Concomitant]
     Dosage: 30 MG, DAILY (1/D)
  14. REGLAN [Concomitant]
     Dosage: 10 MG, 2/D
  15. CARAFATE [Concomitant]
     Dosage: 1 G, OTHER
  16. SYMBICORT [Concomitant]
     Dosage: UNK, 2/D

REACTIONS (2)
  - CHRONIC OBSTRUCTIVE PULMONARY DISEASE [None]
  - PNEUMONIA [None]
